FAERS Safety Report 6249634-2 (Version None)
Quarter: 2009Q2

REPORT INFORMATION
  Report Type: 
  Country: None (occurrence: None)
  Receive Date: 20090629
  Receipt Date: 20090624
  Transmission Date: 20091009
  Serious: Yes (Other)
  Sender: FDA-Public Use
  Company Number: US-ELI_LILLY_AND_COMPANY-US200906005705

PATIENT
  Sex: Female
  Weight: 123.81 kg

DRUGS (9)
  1. BYETTA [Suspect]
     Indication: TYPE 2 DIABETES MELLITUS
     Dates: end: 20090101
  2. METFORMIN [Concomitant]
     Indication: TYPE 2 DIABETES MELLITUS
  3. AVANDIA [Concomitant]
     Indication: TYPE 2 DIABETES MELLITUS
  4. GLYBURIDE [Concomitant]
     Indication: TYPE 2 DIABETES MELLITUS
  5. PRILOSEC [Concomitant]
     Dosage: 20 MG, DAILY (1/D)
  6. DIOVAN [Concomitant]
     Dosage: UNK, DAILY (1/D)
  7. ATENOLOL [Concomitant]
     Dosage: 100 MG, DAILY (1/D)
  8. AMLODIPINE [Concomitant]
     Dosage: 10 MG, DAILY (1/D)
  9. ASPIRIN [Concomitant]
     Dosage: 81 MG, DAILY (1/D)

REACTIONS (3)
  - PANCREATIC DUCT DILATATION [None]
  - PANCREATITIS ACUTE [None]
  - PANCREATITIS CHRONIC [None]
